FAERS Safety Report 7330400-1 (Version None)
Quarter: 2011Q1

REPORT INFORMATION
  Report Type: 
  Country: None (occurrence: None)
  Receive Date: 20110304
  Receipt Date: 20110222
  Transmission Date: 20110831
  Serious: No
  Sender: FDA-Public Use
  Company Number: US-BIOGENIDEC-2010BI032214

PATIENT
  Sex: Female

DRUGS (2)
  1. AMANTADINE HCL [Concomitant]
  2. TYSABRI [Suspect]
     Indication: MULTIPLE SCLEROSIS
     Route: 042
     Dates: start: 20091210

REACTIONS (8)
  - MUSCULAR WEAKNESS [None]
  - GAIT DISTURBANCE [None]
  - FATIGUE [None]
  - STRESS [None]
  - ASTHENIA [None]
  - BACK PAIN [None]
  - FALL [None]
  - HYPOAESTHESIA [None]
